FAERS Safety Report 10211751 (Version 1)
Quarter: 2014Q2

REPORT INFORMATION
  Report Type: Report from Study
  Country: CO (occurrence: CO)
  Receive Date: 20140602
  Receipt Date: 20140602
  Transmission Date: 20141212
  Serious: Yes (Death)
  Sender: FDA-Public Use
  Company Number: CO-ABBVIE-14P-036-1243369-00

PATIENT
  Age: 63 Year
  Sex: Female
  Weight: 43 kg

DRUGS (1)
  1. HUMIRA [Suspect]
     Indication: RHEUMATOID ARTHRITIS
     Route: 058
     Dates: start: 20140514, end: 20140514

REACTIONS (5)
  - Vomiting [Fatal]
  - Headache [Fatal]
  - Decreased activity [Fatal]
  - Asthenia [Fatal]
  - Hydrocephalus [Fatal]
